FAERS Safety Report 22273487 (Version 1)
Quarter: 2023Q2

REPORT INFORMATION
  Report Type: Spontaneous
  Country: AU (occurrence: None)
  Receive Date: 20230502
  Receipt Date: 20230502
  Transmission Date: 20230722
  Serious: Yes (Other)
  Sender: FDA-Public Use
  Company Number: AU-ROCHE-3336853

PATIENT

DRUGS (1)
  1. VABYSMO [Suspect]
     Active Substance: FARICIMAB-SVOA
     Indication: Product used for unknown indication
     Route: 065

REACTIONS (1)
  - Anterior chamber inflammation [Unknown]
